FAERS Safety Report 5077968-6 (Version None)
Quarter: 2006Q3

REPORT INFORMATION
  Report Type: 
  Country: None (occurrence: None)
  Receive Date: 20060811
  Receipt Date: 20060630
  Transmission Date: 20061208
  Serious: Yes (Other)
  Sender: FDA-Public Use
  Company Number: PHEH2006US08539

PATIENT
  Age: 51 Year
  Sex: Female
  Weight: 68.027 kg

DRUGS (1)
  1. LAMISIL [Suspect]
     Indication: NAIL TINEA
     Dosage: 250 MG, QD
     Route: 048
     Dates: start: 20060525, end: 20060609

REACTIONS (8)
  - ARTHRALGIA [None]
  - ASTHENIA [None]
  - DIABETES MELLITUS INADEQUATE CONTROL [None]
  - DYSGEUSIA [None]
  - NEURALGIA [None]
  - PYREXIA [None]
  - SYNCOPE [None]
  - TEMPERATURE REGULATION DISORDER [None]
